FAERS Safety Report 10270680 (Version 2)
Quarter: 2014Q3

REPORT INFORMATION
  Report Type: Report from Study
  Country: AR (occurrence: AR)
  Receive Date: 20140701
  Receipt Date: 20140711
  Transmission Date: 20150326
  Serious: Yes (Death, Hospitalization, Disabling, Other)
  Sender: FDA-Public Use
  Company Number: AR-ABBVIE-14P-007-1253961-00

PATIENT
  Sex: Female

DRUGS (1)
  1. HUMIRA [Suspect]
     Active Substance: ADALIMUMAB
     Indication: RHEUMATOID ARTHRITIS
     Route: 058
     Dates: start: 20110929, end: 2013

REACTIONS (7)
  - Physical disability [Unknown]
  - Spinal fracture [Unknown]
  - Sepsis [Unknown]
  - Respiratory disorder [Unknown]
  - Multi-organ failure [Fatal]
  - General physical health deterioration [Unknown]
  - Urinary tract infection [Unknown]

NARRATIVE: CASE EVENT DATE: 2013
